FAERS Safety Report 23377661 (Version 1)
Quarter: 2024Q1

REPORT INFORMATION
  Report Type: Spontaneous
  Country: US (occurrence: US)
  Receive Date: 20240108
  Receipt Date: 20240108
  Transmission Date: 20240410
  Serious: No
  Sender: FDA-Public Use
  Company Number: US-BIOVITRUM-2024-US-000055

PATIENT
  Age: 8 Month
  Sex: Male
  Weight: 8.16 kg

DRUGS (6)
  1. SYNAGIS [Suspect]
     Active Substance: PALIVIZUMAB
     Indication: Premature baby
     Dosage: ONCE A MONTH
     Route: 030
     Dates: start: 20231129
  2. TODDLER IRON [Concomitant]
     Indication: Product used for unknown indication
     Dosage: 15 MG/M
  3. SENNA [Concomitant]
     Active Substance: SENNA LEAF\SENNOSIDES\SENNOSIDES A AND B
     Indication: Product used for unknown indication
     Dosage: 8.8MG/5
  4. VITAMIN D3 [Concomitant]
     Active Substance: CHOLECALCIFEROL
     Indication: Product used for unknown indication
     Dosage: 25 MCG
  5. LEVOTHYROXINE SODIUM [Concomitant]
     Active Substance: LEVOTHYROXINE SODIUM
     Indication: Product used for unknown indication
     Dosage: 50 MCG
  6. AMOXICILLIN-CLAVULANAT [Concomitant]
     Indication: Product used for unknown indication
     Dosage: 400-57M

REACTIONS (2)
  - Cough [Unknown]
  - Retching [Unknown]

NARRATIVE: CASE EVENT DATE: 20231225
